FAERS Safety Report 8847671 (Version 1)
Quarter: 2012Q4

REPORT INFORMATION
  Report Type: 
  Country: JP (occurrence: JP)
  Receive Date: 20121018
  Receipt Date: 20121018
  Transmission Date: 20130627
  Serious: Yes (Hospitalization)
  Sender: FDA-Public Use
  Company Number: PHHY2012JP092892

PATIENT
  Age: 67 Year
  Sex: Female

DRUGS (6)
  1. ZOMETA [Suspect]
     Indication: METASTASES TO BONE
     Dosage: UNK UKN, UNK
     Dates: start: 2007
  2. ZOMETA [Suspect]
     Dosage: UNK UKN, UNK
     Dates: end: 201207
  3. TASUOMIN [Suspect]
     Dosage: UNK UKN, UNK
  4. DENOSUMAB [Suspect]
     Dosage: 120 mg, UNK
     Dates: start: 201207, end: 20120813
  5. ONEALFA [Concomitant]
     Dosage: UNK UKN, UNK
  6. CALCIUM LACTATE [Concomitant]
     Dosage: UNK UKN, UNK

REACTIONS (6)
  - Osteonecrosis of jaw [Recovering/Resolving]
  - Neoplasm progression [Unknown]
  - Malignant neoplasm progression [Unknown]
  - Metastases to lung [Unknown]
  - Metastases to liver [Unknown]
  - Nodule [Unknown]
